FAERS Safety Report 19796570 (Version 1)
Quarter: 2021Q3

REPORT INFORMATION
  Report Type: Spontaneous
  Country: CN (occurrence: CN)
  Receive Date: 20210907
  Receipt Date: 20210907
  Transmission Date: 20211014
  Serious: Yes (Hospitalization, Other)
  Sender: FDA-Public Use
  Company Number: CN-IPCA LABORATORIES LIMITED-IPC-2021-CN-001616

PATIENT

DRUGS (4)
  1. ALLOPURINOL. [Suspect]
     Active Substance: ALLOPURINOL
     Indication: PAIN IN EXTREMITY
     Dosage: 0.5 GRAM
     Route: 065
  2. ALLOPURINOL. [Suspect]
     Active Substance: ALLOPURINOL
     Indication: GOUT
  3. ALLOPURINOL. [Suspect]
     Active Substance: ALLOPURINOL
     Indication: HYPERURICAEMIA
  4. IBUPROFEN. [Suspect]
     Active Substance: IBUPROFEN
     Indication: PAIN IN EXTREMITY
     Dosage: 0.3 GRAM
     Route: 065

REACTIONS (8)
  - Haematuria [Recovered/Resolved]
  - Hypothyroidism [Recovered/Resolved]
  - Acute kidney injury [Recovered/Resolved]
  - Drug reaction with eosinophilia and systemic symptoms [Recovered/Resolved]
  - Proteinuria [Recovered/Resolved]
  - Leukocyturia [Recovered/Resolved]
  - Tubulointerstitial nephritis [Recovered/Resolved]
  - Glomerulonephritis [Recovered/Resolved]
